FAERS Safety Report 17434370 (Version 1)
Quarter: 2020Q1

REPORT INFORMATION
  Report Type: Report from Study
  Country: US (occurrence: US)
  Receive Date: 20200219
  Receipt Date: 20200219
  Transmission Date: 20200409
  Serious: No
  Sender: FDA-Public Use
  Company Number: NVSC2020US045976

PATIENT
  Sex: Female

DRUGS (1)
  1. ENTRESTO [Suspect]
     Active Substance: SACUBITRIL\VALSARTAN
     Indication: PRODUCT USED FOR UNKNOWN INDICATION
     Dosage: 24 MG, UNKNOWN
     Route: 048
     Dates: start: 201911, end: 202001

REACTIONS (3)
  - Weight increased [Recovering/Resolving]
  - Rash [Recovered/Resolved]
  - Dyspnoea [Recovering/Resolving]
